FAERS Safety Report 9402596 (Version 1)
Quarter: 2013Q3

REPORT INFORMATION
  Report Type: Spontaneous
  Country: DK (occurrence: FR)
  Receive Date: 20130716
  Receipt Date: 20130716
  Transmission Date: 20140515
  Serious: Yes (Hospitalization)
  Sender: FDA-Public Use
  Company Number: FR-FRI-1000046678

PATIENT
  Age: 51 Year
  Sex: Female

DRUGS (7)
  1. ESCITALOPRAM [Suspect]
     Dosage: 1 DF
     Route: 048
     Dates: start: 20130418, end: 20130617
  2. LAMICTAL [Suspect]
     Dosage: 25 MG
     Route: 048
     Dates: start: 20130501
  3. LAMICTAL [Suspect]
     Dosage: 150 MG
     Route: 048
     Dates: end: 20130621
  4. KENZEN [Suspect]
     Dosage: 4 MG
     Route: 048
     Dates: end: 20130621
  5. PROZAC [Concomitant]
     Dates: start: 20130610
  6. IMOVANE [Concomitant]
     Dosage: 7.5 MG
     Route: 048
  7. MOPRAL [Concomitant]
     Route: 048

REACTIONS (1)
  - Agranulocytosis [Recovering/Resolving]
